FAERS Safety Report 9443082 (Version 1)
Quarter: 2013Q3

REPORT INFORMATION
  Report Type: Spontaneous
  Country: US (occurrence: US)
  Receive Date: 20130806
  Receipt Date: 20130806
  Transmission Date: 20140515
  Serious: Yes (Other)
  Sender: FDA-Public Use
  Company Number: US-ELI_LILLY_AND_COMPANY-US201307010020

PATIENT
  Sex: Female

DRUGS (2)
  1. CYMBALTA [Suspect]
     Indication: DEPRESSION
     Dosage: 60 MG, QD
     Route: 065
  2. CYMBALTA [Suspect]
     Indication: BACK PAIN

REACTIONS (5)
  - Skin exfoliation [Unknown]
  - Skin disorder [Unknown]
  - Skin wound [Unknown]
  - Back pain [Unknown]
  - Contusion [Unknown]
